FAERS Safety Report 6745894-X (Version None)
Quarter: 2010Q2

REPORT INFORMATION
  Report Type: 
  Country: None (occurrence: None)
  Receive Date: 20100528
  Receipt Date: 20100528
  Transmission Date: 20101027
  Serious: Yes (Other)
  Sender: FDA-Public Use
  Company Number: None

PATIENT
  Age: 9 Year
  Sex: Male
  Weight: 24.4942 kg

DRUGS (2)
  1. CHILDREN'S BENADRYL ALLERGY [Suspect]
     Indication: MULTIPLE ALLERGIES
     Dosage: 2 TSP AS NEEDED PO
     Route: 048
     Dates: start: 20090908, end: 20100426
  2. CHILDREN'S BENADRYL ALLERGY [Suspect]

REACTIONS (5)
  - BLOOD URINE PRESENT [None]
  - DYSGEUSIA [None]
  - ERYTHEMA INFECTIOSUM [None]
  - PRODUCT QUALITY ISSUE [None]
  - PRODUCT TASTE ABNORMAL [None]
